FAERS Safety Report 13655042 (Version 3)
Quarter: 2019Q1

REPORT INFORMATION
  Report Type: Spontaneous
  Country: US (occurrence: US)
  Receive Date: 20170615
  Receipt Date: 20190130
  Transmission Date: 20190417
  Serious: Yes (Life-Threatening, Hospitalization, Other)
  Sender: FDA-Public Use
  Company Number: US-SUN PHARMACEUTICAL INDUSTRIES LTD-2017US-143148

PATIENT
  Age: 41 Year
  Sex: Male

DRUGS (1)
  1. LOPERAMIDE [Suspect]
     Active Substance: LOPERAMIDE
     Indication: PAIN
     Dosage: LARGE DOSES (}100 MG)
     Route: 065

REACTIONS (3)
  - Electrocardiogram QT prolonged [Recovered/Resolved]
  - Cardiac arrest [Recovered/Resolved]
  - Torsade de pointes [Recovering/Resolving]
